FAERS Safety Report 5963353-9 (Version None)
Quarter: 2008Q4

REPORT INFORMATION
  Report Type: 
  Country: None (occurrence: None)
  Receive Date: 20081124
  Receipt Date: 20081117
  Transmission Date: 20090506
  Serious: Yes (Hospitalization)
  Sender: FDA-Public Use
  Company Number: A0757778A

PATIENT
  Age: 55 Year
  Sex: Male
  Weight: 102.7 kg

DRUGS (8)
  1. AVANDIA [Suspect]
     Dosage: 8MG PER DAY
     Route: 048
     Dates: start: 20040801, end: 20060401
  2. METOPROLOL [Concomitant]
  3. ZOCOR [Concomitant]
  4. DIABETA [Concomitant]
  5. METFORMIN HCL [Concomitant]
  6. GLUCOPHAGE [Concomitant]
  7. ISOSORBIDE [Concomitant]
  8. NITROGLYCERIN [Concomitant]

REACTIONS (6)
  - ATRIAL FIBRILLATION [None]
  - CARDIAC FAILURE CONGESTIVE [None]
  - CORONARY ARTERY DISEASE [None]
  - HYPERCHOLESTEROLAEMIA [None]
  - ISCHAEMIC CARDIOMYOPATHY [None]
  - MYOCARDIAL INFARCTION [None]
